FAERS Safety Report 17648935 (Version 2)
Quarter: 2021Q3

REPORT INFORMATION
  Report Type: Spontaneous
  Country: US (occurrence: US)
  Receive Date: 20200409
  Receipt Date: 20210701
  Transmission Date: 20211014
  Serious: No
  Sender: FDA-Public Use
  Company Number: US-TEVA-2020-US-1221742

PATIENT
  Sex: Female
  Weight: 58.69 kg

DRUGS (4)
  1. AUSTEDO [Suspect]
     Active Substance: DEUTETRABENAZINE
     Indication: HUNTINGTON^S DISEASE
     Dosage: 72 MILLIGRAM DAILY;
     Route: 048
     Dates: start: 2017
  2. MELATONIN [Concomitant]
     Active Substance: MELATONIN
     Route: 065
  3. AUSTEDO [Suspect]
     Active Substance: DEUTETRABENAZINE
     Dosage: 60 MILLIGRAM DAILY;
     Route: 048
     Dates: start: 2017
  4. ADVIL [Concomitant]
     Active Substance: IBUPROFEN
     Route: 065

REACTIONS (3)
  - Rash [Unknown]
  - Overdose [Unknown]
  - Incorrect dose administered [Unknown]
